FAERS Safety Report 15781181 (Version 1)
Quarter: 2019Q1

REPORT INFORMATION
  Report Type: Spontaneous
  Country: AU (occurrence: AU)
  Receive Date: 20190102
  Receipt Date: 20190102
  Transmission Date: 20190417
  Serious: Yes (Other)
  Sender: FDA-Public Use
  Company Number: AU-SAKK-2018SA394654AA

PATIENT
  Age: 59 Year
  Sex: Female

DRUGS (1)
  1. LARONIDASE [Suspect]
     Active Substance: LARONIDASE
     Indication: MUCOPOLYSACCHARIDOSIS I
     Dosage: 0.58 MG/KG
     Route: 065

REACTIONS (4)
  - Strabismus [Recovering/Resolving]
  - Cystoid macular oedema [Recovering/Resolving]
  - Retinal disorder [Recovering/Resolving]
  - Maculopathy [Recovering/Resolving]
